FAERS Safety Report 9496187 (Version 2)
Quarter: 2013Q3

REPORT INFORMATION
  Report Type: Spontaneous
  Country: US (occurrence: US)
  Receive Date: 20130904
  Receipt Date: 20130904
  Transmission Date: 20140515
  Serious: Yes (Death)
  Sender: FDA-Public Use
  Company Number: US-BRISTOL-MYERS SQUIBB COMPANY-19165372

PATIENT
  Age: 65 Year
  Sex: Male

DRUGS (3)
  1. BARACLUDE [Suspect]
     Dosage: INTER; 26-JUL-2013?RESTART:IN AUG
     Route: 048
     Dates: start: 20130618
  2. ZOLPIDEM [Concomitant]
  3. MEGACE [Concomitant]

REACTIONS (2)
  - Brain injury [Fatal]
  - Hepatitis [Fatal]
